FAERS Safety Report 15093320 (Version 1)
Quarter: 2018Q2

REPORT INFORMATION
  Report Type: Report from Study
  Country: US (occurrence: US)
  Receive Date: 20180629
  Receipt Date: 20180629
  Transmission Date: 20180711
  Serious: Yes (Other)
  Sender: FDA-Public Use
  Company Number: PHEH2018US024790

PATIENT
  Age: 66 Year
  Sex: Female

DRUGS (1)
  1. COSENTYX [Suspect]
     Active Substance: SECUKINUMAB
     Indication: PSORIASIS
     Dosage: UNK UNK, Q4W
     Route: 058
     Dates: start: 20171212

REACTIONS (6)
  - Glossodynia [Unknown]
  - Pneumonia [Unknown]
  - Tongue erythema [Unknown]
  - Nasopharyngitis [Unknown]
  - Drug ineffective [Unknown]
  - Urinary tract infection [Unknown]
